FAERS Safety Report 5599366-9 (Version None)
Quarter: 2008Q1

REPORT INFORMATION
  Report Type: 
  Country: None (occurrence: None)
  Receive Date: 20080122
  Receipt Date: 20080110
  Transmission Date: 20080703
  Serious: Yes (Death, Life-Threatening)
  Sender: FDA-Public Use
  Company Number: SE-PFIZER INC-2008002731

PATIENT
  Sex: Male
  Weight: 65 kg

DRUGS (6)
  1. PREDNISOLONE [Suspect]
     Indication: CROHN'S DISEASE
     Route: 048
  2. PREDNISOLONE [Suspect]
     Route: 048
  3. IMUREL [Suspect]
     Indication: CROHN'S DISEASE
     Dosage: DAILY DOSE:125MG
     Route: 048
     Dates: start: 20070703, end: 20070823
  4. OMEPRAZOLE [Suspect]
     Indication: CROHN'S DISEASE
     Dosage: DAILY DOSE:20MG
     Route: 048
  5. OMEPRAZOLE [Suspect]
     Dosage: DAILY DOSE:20MG
     Route: 048
  6. MESALAMINE [Suspect]
     Indication: CROHN'S DISEASE
     Dosage: DAILY DOSE:2.5GRAM
     Route: 048
     Dates: start: 20070501, end: 20070823

REACTIONS (1)
  - DEATH [None]
